FAERS Safety Report 10404062 (Version 2)
Quarter: 2014Q3

REPORT INFORMATION
  Report Type: Spontaneous
  Country: BE (occurrence: BE)
  Receive Date: 20140823
  Receipt Date: 20140823
  Transmission Date: 20150326
  Serious: Yes (Hospitalization)
  Sender: FDA-Public Use
  Company Number: BE-ABBVIE-14K-013-1269421-00

PATIENT
  Age: 52 Year
  Sex: Male
  Weight: 56 kg

DRUGS (1)
  1. HUMIRA [Suspect]
     Active Substance: ADALIMUMAB
     Indication: CROHN^S DISEASE
     Route: 058
     Dates: start: 20091103, end: 201308

REACTIONS (5)
  - Jaundice [Recovered/Resolved with Sequelae]
  - Viral hepatitis carrier [Unknown]
  - Fatigue [Recovered/Resolved with Sequelae]
  - Viral infection [Recovered/Resolved with Sequelae]
  - Hepatitis B [Recovered/Resolved with Sequelae]

NARRATIVE: CASE EVENT DATE: 201308
